FAERS Safety Report 11523724 (Version 1)
Quarter: 2015Q3

REPORT INFORMATION
  Report Type: Spontaneous
  Country: US (occurrence: US)
  Receive Date: 20150903
  Receipt Date: 20150903
  Transmission Date: 20151125
  Serious: No
  Sender: FDA-Public Use
  Company Number: US-ELI_LILLY_AND_COMPANY-US201302009119

PATIENT
  Sex: Female

DRUGS (7)
  1. BACLOFEN. [Concomitant]
     Active Substance: BACLOFEN
  2. SIMVASTATIN. [Concomitant]
     Active Substance: SIMVASTATIN
  3. CYMBALTA [Suspect]
     Active Substance: DULOXETINE HYDROCHLORIDE
     Dosage: 60 MG, BID
     Dates: end: 20130313
  4. PROZAC [Concomitant]
     Active Substance: FLUOXETINE HYDROCHLORIDE
  5. CYMBALTA [Suspect]
     Active Substance: DULOXETINE HYDROCHLORIDE
     Indication: DEPRESSION
     Dosage: 60 MG, QD
     Dates: start: 2008
  6. LEVOTHYROXINE. [Concomitant]
     Active Substance: LEVOTHYROXINE
  7. QUETIAPINE [Concomitant]
     Active Substance: QUETIAPINE

REACTIONS (3)
  - Fungal infection [Unknown]
  - Diarrhoea [Not Recovered/Not Resolved]
  - Oral disorder [Not Recovered/Not Resolved]
